FAERS Safety Report 11596030 (Version 1)
Quarter: 2015Q4

REPORT INFORMATION
  Report Type: Report from Study
  Country: MX (occurrence: MX)
  Receive Date: 20151006
  Receipt Date: 20151006
  Transmission Date: 20160304
  Serious: Yes (Death, Other)
  Sender: FDA-Public Use
  Company Number: PHHY2013MX063856

PATIENT
  Age: 81 Year
  Sex: Female

DRUGS (3)
  1. CO-DIOVAN [Suspect]
     Active Substance: HYDROCHLOROTHIAZIDE\VALSARTAN
     Indication: HYPERTENSION
     Dosage: 1 DF, QD
     Route: 048
     Dates: start: 201207
  2. EXELON [Suspect]
     Active Substance: RIVASTIGMINE TARTRATE
     Indication: SENILE DEMENTIA
     Dosage: 1 DF, QD
     Dates: start: 201304
  3. NORVASC [Concomitant]
     Active Substance: AMLODIPINE BESYLATE
     Indication: HYPERTENSION
     Dosage: 1 UKN, DAILY
     Dates: start: 201207

REACTIONS (3)
  - Abdominal pain upper [Not Recovered/Not Resolved]
  - Diverticulum [Recovering/Resolving]
  - Death [Fatal]

NARRATIVE: CASE EVENT DATE: 20150717
